FAERS Safety Report 7490644-5 (Version None)
Quarter: 2011Q2

REPORT INFORMATION
  Report Type: 
  Country: None (occurrence: None)
  Receive Date: 20110519
  Receipt Date: 20101230
  Transmission Date: 20111010
  Serious: Yes (Hospitalization, Other)
  Sender: FDA-Public Use
  Company Number: US-BAYER-201016050NA

PATIENT
  Age: 49 Year
  Sex: Female
  Weight: 72.562 kg

DRUGS (10)
  1. YASMIN [Suspect]
  2. YASMIN [Suspect]
     Indication: CONTRACEPTION
  3. TRAZODONE HCL [Concomitant]
     Indication: INSOMNIA
  4. TRAZODONE HCL [Concomitant]
     Indication: SLEEP DISORDER THERAPY
     Dosage: DAILY DOSE 50 MG
     Dates: start: 20050101
  5. SPIRONOLACTONE [Concomitant]
     Dosage: UNK
     Dates: start: 20030101, end: 20050101
  6. YASMIN [Suspect]
     Indication: PREMENSTRUAL SYNDROME
     Dosage: UNK
     Route: 048
     Dates: start: 20050701, end: 20060401
  7. YASMIN [Suspect]
     Indication: UTERINE LEIOMYOMA
  8. YASMIN [Suspect]
     Indication: MENORRHAGIA
  9. LEXAPRO [Concomitant]
     Indication: DEPRESSION
     Dosage: DAILY DOSE 20 MG
  10. SYNTHROID [Concomitant]
     Indication: HYPOTHYROIDISM
     Dosage: DAILY DOSE .05 MG
     Dates: start: 20030101

REACTIONS (4)
  - PULMONARY EMBOLISM [None]
  - DEEP VEIN THROMBOSIS [None]
  - INJURY [None]
  - MENTAL DISORDER [None]
